FAERS Safety Report 4774000-6 (Version None)
Quarter: 2005Q3

REPORT INFORMATION
  Report Type: 
  Country: None (occurrence: None)
  Receive Date: 20050919
  Receipt Date: 20050909
  Transmission Date: 20060218
  Serious: Yes (Hospitalization, Disabling)
  Sender: FDA-Public Use
  Company Number: HQWYE641901AUG05

PATIENT
  Age: 67 Year
  Sex: Male
  Weight: 91.25 kg

DRUGS (4)
  1. RAPAMUNE [Suspect]
     Indication: PROPHYLAXIS AGAINST TRANSPLANT REJECTION
     Dosage: 5 MG 1X PER DAY, ORAL
     Route: 048
     Dates: start: 20050318
  2. MYCOPHENOLATE  MOFETIL [Concomitant]
  3. CORTICOSTEROIDS [Concomitant]
  4. ZENAPAX [Concomitant]

REACTIONS (12)
  - AORTIC CALCIFICATION [None]
  - ATELECTASIS [None]
  - BLOOD CREATINE INCREASED [None]
  - BLOOD SODIUM DECREASED [None]
  - BLOOD UREA INCREASED [None]
  - CARDIOMEGALY [None]
  - DYSPNOEA EXACERBATED [None]
  - HAEMATOCRIT DECREASED [None]
  - HAEMOGLOBIN DECREASED [None]
  - PLEURAL EFFUSION [None]
  - RED BLOOD CELL COUNT DECREASED [None]
  - VASCULAR CALCIFICATION [None]
